FAERS Safety Report 5657636-X (Version None)
Quarter: 2008Q1

REPORT INFORMATION
  Report Type: 
  Country: None (occurrence: None)
  Receive Date: 20080310
  Receipt Date: 20080225
  Transmission Date: 20080703
  Serious: Yes (Hospitalization)
  Sender: FDA-Public Use
  Company Number: IT-GILEAD-2008-0015470

PATIENT
  Sex: Male

DRUGS (5)
  1. VIREAD [Suspect]
     Indication: HIV INFECTION
     Dates: start: 20060420, end: 20061222
  2. ENTECAVIR [Concomitant]
     Indication: HEPATITIS B
     Dates: start: 20060420, end: 20061222
  3. ALBUMIN (HUMAN) [Concomitant]
     Dates: start: 20060616, end: 20060624
  4. PHYTOMENADIONE [Concomitant]
     Dates: start: 20060213
  5. OMEPRAZOLE [Concomitant]
     Dates: start: 20060616

REACTIONS (8)
  - ASCITES [None]
  - BLOOD CREATININE INCREASED [None]
  - ENCEPHALOPATHY [None]
  - HYPERAMMONAEMIA [None]
  - HYPERNATRAEMIA [None]
  - HYPOALBUMINAEMIA [None]
  - RENAL FAILURE [None]
  - URINARY TRACT INFECTION [None]
